FAERS Safety Report 10192580 (Version 2)
Quarter: 2014Q2

REPORT INFORMATION
  Report Type: Spontaneous
  Country: CA (occurrence: CA)
  Receive Date: 20140523
  Receipt Date: 20140612
  Transmission Date: 20141212
  Serious: Yes (Other)
  Sender: FDA-Public Use
  Company Number: CA-ACTAVIS-2014-10556

PATIENT
  Sex: Male

DRUGS (1)
  1. DICLOFENAC-MISOPROSTOL (UNKNOWN) [Suspect]
     Indication: PRODUCT USED FOR UNKNOWN INDICATION
     Dosage: UNK

REACTIONS (3)
  - Faeces discoloured [Unknown]
  - Abdominal discomfort [Unknown]
  - Product substitution issue [Unknown]
